FAERS Safety Report 9299714 (Version 1)
Quarter: 2013Q2

REPORT INFORMATION
  Report Type: Spontaneous
  Country: US (occurrence: US)
  Receive Date: 20130521
  Receipt Date: 20130521
  Transmission Date: 20140414
  Serious: No
  Sender: FDA-Public Use
  Company Number: US-BIOGENIDEC-2013BI043352

PATIENT
  Sex: Female

DRUGS (1)
  1. AVONEX [Suspect]
     Indication: MULTIPLE SCLEROSIS
     Route: 030
     Dates: end: 2013

REACTIONS (3)
  - Drug ineffective [Recovered/Resolved]
  - Central nervous system lesion [Not Recovered/Not Resolved]
  - Skin lesion [Not Recovered/Not Resolved]
